FAERS Safety Report 23103162 (Version 1)
Quarter: 2023Q4

REPORT INFORMATION
  Report Type: Spontaneous
  Country: CN (occurrence: CN)
  Receive Date: 20231025
  Receipt Date: 20231025
  Transmission Date: 20240110
  Serious: Yes (Other)
  Sender: FDA-Public Use
  Company Number: CN-MLMSERVICE-2023100945945141

PATIENT
  Age: 41 Year
  Sex: Male

DRUGS (15)
  1. METHOTREXATE [Suspect]
     Active Substance: METHOTREXATE
     Indication: Diffuse large B-cell lymphoma
     Dosage: 6000 MG (DAY 1)-3 CYCLES
     Dates: start: 202106, end: 2021
  2. FLUCONAZOLE [Concomitant]
     Active Substance: FLUCONAZOLE
     Indication: Antifungal prophylaxis
     Route: 048
     Dates: start: 2021
  3. TEMOZOLOMIDE [Concomitant]
     Active Substance: TEMOZOLOMIDE
     Indication: Epstein-Barr virus associated lymphoma
     Dosage: 200 MG/DAY (DAY1-DAY5)-3 CYCLES
     Dates: start: 202106, end: 202111
  4. AZITHROMYCIN [Concomitant]
     Active Substance: AZITHROMYCIN
     Indication: Antibiotic prophylaxis
     Route: 048
     Dates: start: 2021
  5. SULFAMETHOXAZOLE\TRIMETHOPRIM [Concomitant]
     Active Substance: SULFAMETHOXAZOLE\TRIMETHOPRIM
     Indication: Antifungal prophylaxis
     Dosage: ORAL, 2 TABLETS DAILY
     Route: 048
     Dates: start: 2021
  6. IBRUTINIB [Concomitant]
     Active Substance: IBRUTINIB
     Indication: Central nervous system lymphoma
     Dates: start: 202106
  7. BICTEGRAVIR [Concomitant]
     Active Substance: BICTEGRAVIR
     Indication: Antiretroviral therapy
     Dates: start: 202105
  8. EMTRICITABINE [Concomitant]
     Active Substance: EMTRICITABINE
     Indication: Antiretroviral therapy
     Dates: start: 202105
  9. TENOFOVIR ALAFENAMIDE FUMARATE [Concomitant]
     Active Substance: TENOFOVIR ALAFENAMIDE FUMARATE
     Indication: Antiretroviral therapy
     Dates: start: 202105
  10. TEMOZOLOMIDE [Concomitant]
     Active Substance: TEMOZOLOMIDE
     Indication: Central nervous system lymphoma
     Dosage: 200 MG/DAY (DAY1-DAY5)-3 CYCLES
     Dates: start: 202106, end: 202111
  11. IBRUTINIB [Concomitant]
     Active Substance: IBRUTINIB
     Indication: Diffuse large B-cell lymphoma
     Dates: start: 202106
  12. METHOTREXATE [Suspect]
     Active Substance: METHOTREXATE
     Indication: Epstein-Barr virus associated lymphoma
     Dosage: 6000 MG (DAY 1)-3 CYCLES
     Dates: start: 202106, end: 2021
  13. TEMOZOLOMIDE [Concomitant]
     Active Substance: TEMOZOLOMIDE
     Indication: Diffuse large B-cell lymphoma
     Dosage: 200 MG/DAY (DAY1-DAY5)-3 CYCLES
     Dates: start: 202106, end: 202111
  14. METHOTREXATE [Suspect]
     Active Substance: METHOTREXATE
     Indication: Central nervous system lymphoma
     Dosage: 6000 MG (DAY 1)-3 CYCLES
     Dates: start: 202106, end: 2021
  15. IBRUTINIB [Concomitant]
     Active Substance: IBRUTINIB
     Indication: Epstein-Barr virus associated lymphoma
     Dates: start: 202106

REACTIONS (1)
  - Nephropathy toxic [Unknown]

NARRATIVE: CASE EVENT DATE: 20210901
